FAERS Safety Report 8403526-9 (Version None)
Quarter: 2012Q2

REPORT INFORMATION
  Report Type: 
  Country: None (occurrence: None)
  Receive Date: 20120601
  Receipt Date: 20120524
  Transmission Date: 20120825
  Serious: Yes (Other)
  Sender: FDA-Public Use
  Company Number: US-ABBOTT-12P-163-0939454-00

PATIENT
  Sex: Female

DRUGS (4)
  1. HUMIRA [Suspect]
     Indication: PSORIASIS
     Dates: start: 20060601, end: 20120201
  2. UNKNOWN OVER THE COUNTER MEDICATIONS [Concomitant]
     Indication: PRODUCT USED FOR UNKNOWN INDICATION
  3. UNKNOWN OVER THE COUNTER MEDICATIONS [Concomitant]
  4. HUMIRA [Suspect]
     Dates: start: 20120516

REACTIONS (1)
  - ARTHRITIS [None]
